FAERS Safety Report 15049220 (Version 1)
Quarter: 2018Q2

REPORT INFORMATION
  Report Type: Spontaneous
  Country: IN (occurrence: IN)
  Receive Date: 20180622
  Receipt Date: 20180622
  Transmission Date: 20180711
  Serious: Yes (Other)
  Sender: FDA-Public Use
  Company Number: IN-MACLEODS PHARMACEUTICALS US LTD-MAC2018014317

PATIENT

DRUGS (1)
  1. TRAMADOL HYDROCHLORIDE. [Suspect]
     Active Substance: TRAMADOL HYDROCHLORIDE
     Indication: PRODUCT USED FOR UNKNOWN INDICATION
     Dosage: 200 MILLIGRAM, QD (OPIUM IN THE FORM OF TRAMADOL)
     Route: 065

REACTIONS (4)
  - Drug abuse [Recovered/Resolved]
  - Ulcer [Recovered/Resolved]
  - Duodenal stenosis [Recovered/Resolved]
  - Obstruction gastric [Recovered/Resolved]
